FAERS Safety Report 11077681 (Version 1)
Quarter: 2015Q2

REPORT INFORMATION
  Report Type: Spontaneous
  Country: FR (occurrence: FR)
  Receive Date: 20150430
  Receipt Date: 20150430
  Transmission Date: 20150821
  Serious: Yes (Life-Threatening, Hospitalization)
  Sender: FDA-Public Use
  Company Number: FR-ROCHE-1536127

PATIENT
  Sex: Male
  Weight: 66 kg

DRUGS (2)
  1. AVASTIN [Suspect]
     Active Substance: BEVACIZUMAB
     Indication: NON-SMALL CELL LUNG CANCER
     Dosage: DOSE= 15 MG/KG ON D1 AND ON D21
     Route: 042
     Dates: start: 20140626, end: 20150108
  2. COVERSYL [Concomitant]
     Active Substance: PERINDOPRIL
     Indication: HYPERTENSION
     Route: 048

REACTIONS (4)
  - Peritonitis [Unknown]
  - Diverticulum [Recovered/Resolved]
  - Pelvic abscess [Unknown]
  - Gastrointestinal perforation [Recovered/Resolved]

NARRATIVE: CASE EVENT DATE: 20150118
